FAERS Safety Report 14185032 (Version 1)
Quarter: 2017Q4

REPORT INFORMATION
  Report Type: Spontaneous
  Country: US (occurrence: None)
  Receive Date: 20171111
  Receipt Date: 20171111
  Transmission Date: 20180321
  Serious: Yes (Hospitalization)
  Sender: FDA-Public Use
  Company Number: None

PATIENT
  Sex: Female

DRUGS (1)
  1. IBRANCE [Suspect]
     Active Substance: PALBOCICLIB
     Indication: PRODUCT USED FOR UNKNOWN INDICATION
     Dosage: 100 MG DAILY FOR 21 DAYS OF 28 DAY CYCLE PO
     Route: 048
     Dates: start: 20170530, end: 20171110

REACTIONS (3)
  - Platelet count decreased [None]
  - Cerebrovascular accident [None]
  - Cerebral haemorrhage [None]
